FAERS Safety Report 6896584-4 (Version None)
Quarter: 2010Q3

REPORT INFORMATION
  Report Type: 
  Country: None (occurrence: None)
  Receive Date: 20100729
  Receipt Date: 20100716
  Transmission Date: 20110219
  Serious: Yes (Disabling)
  Sender: FDA-Public Use
  Company Number: 2010-2514

PATIENT
  Age: 46 Year
  Sex: Female
  Weight: 70 kg

DRUGS (2)
  1. DYSPORT [Suspect]
     Indication: MYOCLONUS
     Dosage: 30 UNITS, 1 IN 3 M, INTRAMUSCULAR
     Route: 030
  2. DYSPORT [Suspect]
     Indication: PALATAL DISORDER
     Dosage: 30 UNITS, 1 IN 3 M, INTRAMUSCULAR
     Route: 030

REACTIONS (3)
  - DYSPHAGIA [None]
  - PALATAL DISORDER [None]
  - PARALYSIS [None]
